FAERS Safety Report 13179932 (Version 1)
Quarter: 2017Q1

REPORT INFORMATION
  Report Type: Spontaneous
  Country: FR (occurrence: FR)
  Receive Date: 20170202
  Receipt Date: 20170202
  Transmission Date: 20170428
  Serious: Yes (Hospitalization)
  Sender: FDA-Public Use
  Company Number: FR-009507513-1701FRA013290

PATIENT
  Age: 25 Year
  Sex: Female

DRUGS (4)
  1. OVITRELLE [Suspect]
     Active Substance: CHORIOGONADOTROPIN ALFA
     Indication: IN VITRO FERTILISATION
     Dosage: 1 DF (250 MICROGRAMS/ 0.5 ML), ONCE DAILY
     Route: 058
     Dates: start: 20161113
  2. GONAL-F [Suspect]
     Active Substance: FOLLITROPIN
     Indication: IN VITRO FERTILISATION
     Dosage: 187.5 IU, ONCE DAILY
     Route: 058
     Dates: start: 201611
  3. GONAL-F [Suspect]
     Active Substance: FOLLITROPIN
     Dosage: 87.5 IU, ONCE DAILY
     Route: 058
     Dates: start: 201611
  4. ORGALUTRAN [Suspect]
     Active Substance: GANIRELIX ACETATE
     Indication: IN VITRO FERTILISATION
     Dosage: 1 DF (0.25 MG/0.5 ML)
     Route: 058
     Dates: start: 201611

REACTIONS (2)
  - Ovarian hyperstimulation syndrome [Recovered/Resolved]
  - Ascites [Recovered/Resolved]

NARRATIVE: CASE EVENT DATE: 20161120
